FAERS Safety Report 7120564-7 (Version None)
Quarter: 2010Q4

REPORT INFORMATION
  Report Type: 
  Country: None (occurrence: None)
  Receive Date: 20101122
  Receipt Date: 20101122
  Transmission Date: 20110411
  Serious: No
  Sender: FDA-Public Use
  Company Number: None

PATIENT
  Sex: Male
  Weight: 85.2762 kg

DRUGS (1)
  1. TETRACYCLINE [Suspect]
     Indication: INFECTION
     Dosage: 250 TWICE DAILY
     Dates: start: 20101001

REACTIONS (1)
  - NO ADVERSE EVENT [None]
